FAERS Safety Report 17501375 (Version 1)
Quarter: 2020Q1

REPORT INFORMATION
  Report Type: Spontaneous
  Country: FR (occurrence: FR)
  Receive Date: 20200305
  Receipt Date: 20200305
  Transmission Date: 20200409
  Serious: Yes (Hospitalization)
  Sender: FDA-Public Use
  Company Number: NVSC2020FR059664

PATIENT
  Age: 34 Year
  Sex: Female
  Weight: 65 kg

DRUGS (4)
  1. SPASFON [Concomitant]
     Indication: ABDOMINAL PAIN
     Dosage: UNK
     Route: 055
     Dates: start: 20190410, end: 20190501
  2. METEOSPASMYL [Concomitant]
     Indication: ABDOMINAL PAIN
     Dosage: UNK
     Route: 048
     Dates: start: 20190410, end: 20190501
  3. IBUPROFEN. [Suspect]
     Active Substance: IBUPROFEN
     Indication: ABDOMINAL PAIN
     Dosage: 800 MG, QD
     Route: 048
     Dates: start: 20190410, end: 20190501
  4. PARACETAMOL [Concomitant]
     Active Substance: ACETAMINOPHEN
     Indication: ABDOMINAL PAIN
     Dosage: 4 G, QD
     Route: 048
     Dates: start: 20190410

REACTIONS (1)
  - Pyelonephritis [Recovering/Resolving]

NARRATIVE: CASE EVENT DATE: 20190501
